FAERS Safety Report 13806184 (Version 2)
Quarter: 2017Q3

REPORT INFORMATION
  Report Type: Spontaneous
  Country: US (occurrence: US)
  Receive Date: 20170728
  Receipt Date: 20170802
  Transmission Date: 20171127
  Serious: Yes (Life-Threatening, Other)
  Sender: FDA-Public Use
  Company Number: US-PFIZER INC-2017326105

PATIENT
  Age: 61 Year
  Sex: Male

DRUGS (10)
  1. NOREPINEPHRINE. [Concomitant]
     Active Substance: NOREPINEPHRINE
     Indication: MEAN ARTERIAL PRESSURE
     Dosage: UNK
  2. AMIODARONE [Concomitant]
     Active Substance: AMIODARONE
     Indication: SUPRAVENTRICULAR TACHYCARDIA
     Dosage: 300 MG, UNK
     Route: 040
  3. HEPARIN [Suspect]
     Active Substance: HEPARIN SODIUM
     Indication: INTRACARDIAC THROMBUS
     Dosage: 8000 IU, UNK (HEPARIN INFUSION AT 250 UNITS/HOUR)
     Route: 040
  4. AMINOCAPROIC ACID. [Concomitant]
     Active Substance: AMINOCAPROIC ACID
     Dosage: UNK
  5. HEPARIN [Suspect]
     Active Substance: HEPARIN SODIUM
     Indication: PULMONARY EMBOLISM
  6. AMIODARONE [Concomitant]
     Active Substance: AMIODARONE
     Dosage: UNK
     Route: 041
  7. ALTEPLASE. [Concomitant]
     Active Substance: ALTEPLASE
     Dosage: 100 MG, UNK, (OR EVEN HALF DOSE)
     Route: 042
  8. DOBUTAMINE [Concomitant]
     Active Substance: DOBUTAMINE\DOBUTAMINE HYDROCHLORIDE
     Indication: MEAN ARTERIAL PRESSURE
     Dosage: UNK
  9. ALTEPLASE. [Concomitant]
     Active Substance: ALTEPLASE
     Dosage: UNK, (4 MG/HOUR INFUSION, OVER 3 HOURS FOR A TOTAL OF DOSE OF 12 MG)
     Route: 042
  10. EPINEPHRINE. [Concomitant]
     Active Substance: EPINEPHRINE
     Indication: MEAN ARTERIAL PRESSURE
     Dosage: UNK

REACTIONS (1)
  - Drug ineffective [Unknown]
